FAERS Safety Report 9801694 (Version 1)
Quarter: 2014Q1

REPORT INFORMATION
  Report Type: Report from Study
  Country: US (occurrence: US)
  Receive Date: 20140107
  Receipt Date: 20140107
  Transmission Date: 20141002
  Serious: Yes (Hospitalization, Other)
  Sender: FDA-Public Use
  Company Number: US-GLAXOSMITHKLINE-A1055603A

PATIENT
  Age: 82 Year
  Sex: Male
  Weight: 88.9 kg

DRUGS (3)
  1. OFATUMUMAB [Suspect]
     Indication: CHRONIC LYMPHOCYTIC LEUKAEMIA
     Dosage: 2000MG WEEKLY
     Route: 042
     Dates: start: 20131113
  2. TEGRETOL [Concomitant]
  3. VESICARE [Concomitant]

REACTIONS (2)
  - Febrile neutropenia [Not Recovered/Not Resolved]
  - Troponin increased [Not Recovered/Not Resolved]
